FAERS Safety Report 9485988 (Version 1)
Quarter: 2013Q3

REPORT INFORMATION
  Report Type: Spontaneous
  Country: US (occurrence: None)
  Receive Date: 20130827
  Receipt Date: 20130827
  Transmission Date: 20140515
  Serious: Yes (Other)
  Sender: FDA-Public Use
  Company Number: None

PATIENT
  Age: 83 Year
  Sex: Female
  Weight: 65 kg

DRUGS (13)
  1. DENOSUMAB [Suspect]
     Indication: OSTEOPOROSIS
     Dates: start: 20130822, end: 20130822
  2. VITAMIN D3 [Concomitant]
  3. B12 [Concomitant]
  4. DICLOFENAC [Concomitant]
  5. LEXAPRO [Concomitant]
  6. FOLIC ACID [Concomitant]
  7. FUROSEMIDE [Concomitant]
  8. LANSOPRAZOLE [Concomitant]
  9. METHOTREXATE [Concomitant]
  10. TOPROL XL [Concomitant]
  11. MULTIVITAMIN [Concomitant]
  12. MIRALAX [Concomitant]
  13. TRAMADOL [Concomitant]

REACTIONS (2)
  - Vision blurred [None]
  - Vertigo [None]
